FAERS Safety Report 9278712 (Version 1)
Quarter: 2013Q2

REPORT INFORMATION
  Report Type: Spontaneous
  Country: GB (occurrence: None)
  Receive Date: 20130503
  Receipt Date: 20130503
  Transmission Date: 20140414
  Serious: Yes (Death)
  Sender: FDA-Public Use
  Company Number: AUR-APL-2013-03535

PATIENT
  Age: 49 Year
  Sex: Male
  Weight: 85 kg

DRUGS (2)
  1. MIRTAZAPINE (MIRTAZAPINE) [Suspect]
     Indication: ANXIETY
     Route: 048
     Dates: start: 20130319, end: 20130412
  2. CITALOPRAM (CITALOPRAM) [Concomitant]

REACTIONS (1)
  - Completed suicide [None]
